FAERS Safety Report 9803861 (Version 1)
Quarter: 2014Q1

REPORT INFORMATION
  Report Type: Spontaneous
  Country: US (occurrence: None)
  Receive Date: 20140103
  Receipt Date: 20140103
  Transmission Date: 20141002
  Serious: Yes (Hospitalization)
  Sender: FDA-Public Use
  Company Number: ACET20130040

PATIENT
  Age: 68 Year
  Sex: Male

DRUGS (2)
  1. Q-PAP [Suspect]
     Indication: OSTEOARTHRITIS
     Route: 048
  2. LISINOPRIL [Concomitant]

REACTIONS (2)
  - Metabolic acidosis [None]
  - Toxicity to various agents [None]
